FAERS Safety Report 13406928 (Version 2)
Quarter: 2017Q2

REPORT INFORMATION
  Report Type: Spontaneous
  Country: IT (occurrence: IT)
  Receive Date: 20170405
  Receipt Date: 20170412
  Transmission Date: 20170830
  Serious: Yes (Other)
  Sender: FDA-Public Use
  Company Number: IT-PFIZER INC-2017145847

PATIENT
  Age: 71 Year
  Sex: Female

DRUGS (1)
  1. TAVOR (LORAZEPAM) [Suspect]
     Active Substance: LORAZEPAM
     Dosage: A BLISTER OF TAVOR 2.5 MG TABLETS (18-19 DF, TOTAL)
     Dates: start: 20170323, end: 20170323

REACTIONS (3)
  - Drug use disorder [Recovering/Resolving]
  - Intentional overdose [Recovering/Resolving]
  - Intentional self-injury [Recovering/Resolving]

NARRATIVE: CASE EVENT DATE: 20170323
